FAERS Safety Report 8276650 (Version 4)
Quarter: 2013Q4

REPORT INFORMATION
  Report Type: Spontaneous
  Country: US (occurrence: US)
  Receive Date: 20111206
  Receipt Date: 20131230
  Transmission Date: 20140711
  Serious: Yes (Hospitalization)
  Sender: FDA-Public Use
  Company Number: US-GLAXOSMITHKLINE-A0934257A

PATIENT
  Age: 77 Year
  Sex: Male

DRUGS (1)
  1. AVANDIA [Suspect]
     Indication: DIABETES MELLITUS
     Dosage: 4MG PER DAY
     Route: 048
     Dates: start: 200602, end: 20070330

REACTIONS (5)
  - Myocardial infarction [Unknown]
  - Ischaemic cardiomyopathy [Unknown]
  - Cardiac failure congestive [Unknown]
  - Sick sinus syndrome [Unknown]
  - Cardiovascular disorder [Unknown]
